FAERS Safety Report 18332532 (Version 1)
Quarter: 2020Q3

REPORT INFORMATION
  Report Type: Spontaneous
  Country: DE (occurrence: DE)
  Receive Date: 20200930
  Receipt Date: 20200930
  Transmission Date: 20201103
  Serious: Yes (Hospitalization)
  Sender: FDA-Public Use
  Company Number: DE-009507513-2009DEU008115

PATIENT
  Age: 19 Month
  Sex: Male

DRUGS (2)
  1. CHASTE TREE FRUIT. [Suspect]
     Active Substance: CHASTE TREE FRUIT
     Indication: ACCIDENTAL EXPOSURE TO PRODUCT BY CHILD
     Dosage: DAILY DOSE: 1 DF DOSAGE FORM EVERY DAYS
     Route: 048
     Dates: start: 20200604, end: 20200604
  2. MIRTAZAPINE. [Suspect]
     Active Substance: MIRTAZAPINE
     Indication: ACCIDENTAL EXPOSURE TO PRODUCT BY CHILD
     Dosage: DAILY DOSE: 1 DF DOSAGE FORM EVERY DAYS, FILM? COATED TABLET
     Route: 048
     Dates: start: 20200604, end: 20200604

REACTIONS (4)
  - Product administration error [Unknown]
  - Miosis [Unknown]
  - Somnolence [Unknown]
  - Accidental exposure to product by child [Unknown]

NARRATIVE: CASE EVENT DATE: 20200604
